FAERS Safety Report 7446138-6 (Version None)
Quarter: 2011Q2

REPORT INFORMATION
  Report Type: 
  Country: None (occurrence: None)
  Receive Date: 20110429
  Receipt Date: 20110419
  Transmission Date: 20111010
  Serious: Yes (Death, Life-Threatening, Hospitalization, Other)
  Sender: FDA-Public Use
  Company Number: B0699992A

PATIENT
  Sex: Female

DRUGS (11)
  1. EZETIMIBE [Concomitant]
     Dates: start: 20091125
  2. CLONAZEPAM [Suspect]
     Dosage: .5MG THREE TIMES PER DAY
     Route: 065
  3. WARFARIN SODIUM [Suspect]
     Indication: THROMBOSIS PROPHYLAXIS
     Dosage: 7MG PER DAY
     Route: 048
     Dates: start: 20090904
  4. CIPRALEX [Suspect]
     Indication: DEPRESSION
     Dosage: 30MG PER DAY
     Route: 065
  5. ATIVAN [Suspect]
     Dosage: 1MG AS REQUIRED
     Route: 065
  6. PLACEBO [Suspect]
     Indication: THROMBOSIS PROPHYLAXIS
     Route: 048
     Dates: start: 20090904
  7. METFORMIN [Concomitant]
  8. METOPROLOL TARTRATE [Suspect]
     Dosage: 50MG TWICE PER DAY
     Route: 065
  9. RYTHMOL [Suspect]
     Dosage: 150MG THREE TIMES PER DAY
     Route: 065
     Dates: start: 20100301
  10. APIXABAN [Suspect]
     Indication: THROMBOSIS PROPHYLAXIS
     Dosage: 5MG TWICE PER DAY
     Route: 048
     Dates: start: 20090904
  11. GLICLAZIDE [Concomitant]

REACTIONS (6)
  - HYPOXIA [None]
  - HYPOTENSION [None]
  - MENTAL DISORDER [None]
  - SUICIDAL IDEATION [None]
  - OVERDOSE [None]
  - DEPRESSED LEVEL OF CONSCIOUSNESS [None]
